FAERS Safety Report 9106176 (Version 1)
Quarter: 2013Q1

REPORT INFORMATION
  Report Type: Spontaneous
  Country: US (occurrence: US)
  Receive Date: 20130221
  Receipt Date: 20130221
  Transmission Date: 20140127
  Serious: No
  Sender: FDA-Public Use
  Company Number: US-ASTRAZENECA-2013SE08782

PATIENT
  Age: 25 Year
  Sex: Female
  Weight: 61.2 kg

DRUGS (5)
  1. NEXIUM [Suspect]
     Indication: GASTROOESOPHAGEAL REFLUX DISEASE
     Route: 048
  2. PRILOSEC [Suspect]
     Indication: GASTROOESOPHAGEAL REFLUX DISEASE
     Route: 048
     Dates: start: 201209
  3. PRILOSEC [Suspect]
     Indication: GASTROOESOPHAGEAL REFLUX DISEASE
     Route: 048
  4. BENADRYL [Concomitant]
     Indication: ASTHMA
  5. ALBUTEROL INHALER [Concomitant]
     Indication: ASTHMA

REACTIONS (4)
  - Gastrooesophageal reflux disease [Unknown]
  - Weight decreased [Unknown]
  - Inguinal hernia [Unknown]
  - Drug ineffective [Unknown]
